FAERS Safety Report 25711539 (Version 1)
Quarter: 2025Q3

REPORT INFORMATION
  Report Type: Spontaneous
  Country: GB (occurrence: GB)
  Receive Date: 20250821
  Receipt Date: 20250821
  Transmission Date: 20251020
  Serious: Yes (Other)
  Sender: ESPERION THERAPEUTICS
  Company Number: None

PATIENT
  Age: 76 Year
  Sex: Female
  Weight: 74 kg

DRUGS (1)
  1. BEMPEDOIC ACID [Suspect]
     Active Substance: BEMPEDOIC ACID
     Indication: Product used for unknown indication
     Dosage: 180 MG, QD (ONE TO BE TAKEN ONCE DAILY)
     Route: 065
     Dates: start: 20250325, end: 20250812

REACTIONS (1)
  - Myalgia [Recovered/Resolved]
